FAERS Safety Report 4926457-5 (Version None)
Quarter: 2006Q1

REPORT INFORMATION
  Report Type: 
  Country: None (occurrence: None)
  Receive Date: 20060228
  Receipt Date: 20051130
  Transmission Date: 20060701
  Serious: Yes (Life-Threatening, Hospitalization, Disabling, Other)
  Sender: FDA-Public Use
  Company Number: US-GLAXOSMITHKLINE-A0584075A

PATIENT
  Age: 15 Year
  Sex: Male

DRUGS (2)
  1. LAMICTAL [Suspect]
     Indication: IMPULSE-CONTROL DISORDER
     Route: 048
  2. DEPAKOTE [Concomitant]
     Dosage: 1500MG PER DAY

REACTIONS (2)
  - INCORRECT DOSE ADMINISTERED [None]
  - STEVENS-JOHNSON SYNDROME [None]
